FAERS Safety Report 8136128-2 (Version None)
Quarter: 2012Q1

REPORT INFORMATION
  Report Type: 
  Country: None (occurrence: None)
  Receive Date: 20120214
  Receipt Date: 20111213
  Transmission Date: 20120608
  Serious: No
  Sender: FDA-Public Use
  Company Number: US-COVIDIEN/TYCO HEALTHCARE/MALLINCKRODT-T201102904

PATIENT
  Age: 52 Year
  Sex: Female

DRUGS (1)
  1. FENTANYL-100 [Suspect]
     Dosage: 25 UG/HR, UNK

REACTIONS (5)
  - PALPITATIONS [None]
  - DYSURIA [None]
  - VOMITING [None]
  - DIZZINESS [None]
  - NAUSEA [None]
